FAERS Safety Report 7368966-8 (Version None)
Quarter: 2011Q1

REPORT INFORMATION
  Report Type: 
  Country: None (occurrence: None)
  Receive Date: 20110323
  Receipt Date: 20110224
  Transmission Date: 20110831
  Serious: No
  Sender: FDA-Public Use
  Company Number: US-B.I. PHARMACEUTICALS,INC./RIDGEFIELD-2011-BP-06701BP

PATIENT
  Sex: Male

DRUGS (5)
  1. METOPROLOL TARTRATE [Concomitant]
     Indication: HYPERTENSION
     Route: 048
  2. LIPITOR [Concomitant]
     Indication: PROPHYLAXIS
     Route: 048
  3. PRADAXA [Suspect]
     Indication: ATRIAL FIBRILLATION
     Dosage: 300 MG
     Route: 048
     Dates: start: 20110201
  4. PLAQUENIL [Concomitant]
     Indication: RHEUMATOID ARTHRITIS
     Dosage: 400 MG
     Route: 048
  5. DIGOXIN [Concomitant]
     Indication: ATRIAL FIBRILLATION
     Route: 048

REACTIONS (3)
  - FATIGUE [None]
  - MALAISE [None]
  - MYALGIA [None]
